FAERS Safety Report 15065434 (Version 1)
Quarter: 2018Q2

REPORT INFORMATION
  Report Type: Spontaneous
  Country: US (occurrence: US)
  Receive Date: 20180605
  Receipt Date: 20180605
  Transmission Date: 20180711
  Serious: Yes (Hospitalization, Disabling, Other)
  Sender: FDA-Public Use
  Company Number: None

PATIENT
  Age: 31 Year
  Sex: Female
  Weight: 126 kg

DRUGS (3)
  1. INSULIN PUMP [Concomitant]
     Active Substance: INSULIN NOS
  2. METHYLPHENIDATE ER 54 MG TAB [Suspect]
     Active Substance: METHYLPHENIDATE HYDROCHLORIDE
     Indication: ATTENTION DEFICIT/HYPERACTIVITY DISORDER
     Dosage: ?          QUANTITY:1 TABLET(S);?
     Route: 048
     Dates: start: 20180605, end: 20180605
  3. NOVOLOG [Concomitant]
     Active Substance: INSULIN ASPART

REACTIONS (6)
  - Feeling hot [None]
  - Sinus tachycardia [None]
  - Chest pain [None]
  - Product substitution issue [None]
  - Restlessness [None]
  - Dyspnoea [None]

NARRATIVE: CASE EVENT DATE: 20180605
